FAERS Safety Report 13051395 (Version 1)
Quarter: 2016Q4

REPORT INFORMATION
  Report Type: Spontaneous
  Country: US (occurrence: US)
  Receive Date: 20161221
  Receipt Date: 20161221
  Transmission Date: 20170207
  Serious: Yes (Life-Threatening, Hospitalization)
  Sender: FDA-Public Use
  Company Number: None

PATIENT
  Age: 67 Year
  Sex: Male

DRUGS (5)
  1. KRILL OIL [Concomitant]
     Active Substance: DIETARY SUPPLEMENT
  2. ATORVASTATIN [Concomitant]
     Active Substance: ATORVASTATIN
  3. NORVASC [Concomitant]
     Active Substance: AMLODIPINE BESYLATE
  4. LISINOPRIL. [Suspect]
     Active Substance: LISINOPRIL
     Indication: HYPERTENSION
     Dosage: ?          QUANTITY:1 TABLET(S);?
     Route: 048
  5. MVI 60+ [Concomitant]

REACTIONS (1)
  - Angioedema [None]

NARRATIVE: CASE EVENT DATE: 20161215
